FAERS Safety Report 23219158 (Version 1)
Quarter: 2023Q4

REPORT INFORMATION
  Report Type: Spontaneous
  Country: JP (occurrence: None)
  Receive Date: 20231122
  Receipt Date: 20231122
  Transmission Date: 20240110
  Serious: Yes (Other)
  Sender: FDA-Public Use
  Company Number: 2023A262015

PATIENT
  Age: 18 Year
  Sex: Female

DRUGS (1)
  1. KOSELUGO [Suspect]
     Active Substance: SELUMETINIB
     Indication: Neurofibroma
     Route: 048
     Dates: start: 20230623, end: 20231102

REACTIONS (1)
  - Neurofibrosarcoma [Not Recovered/Not Resolved]

NARRATIVE: CASE EVENT DATE: 20230101
